FAERS Safety Report 8156099-2 (Version None)
Quarter: 2012Q1

REPORT INFORMATION
  Report Type: 
  Country: None (occurrence: None)
  Receive Date: 20120222
  Receipt Date: 20120220
  Transmission Date: 20120608
  Serious: Yes (Hospitalization, Other)
  Sender: FDA-Public Use
  Company Number: US-PFIZER INC-2012044815

PATIENT
  Sex: Male
  Weight: 72.6 kg

DRUGS (7)
  1. DIGOXIN [Concomitant]
     Dosage: UNK
  2. LIPITOR [Concomitant]
     Dosage: UNK
  3. AVODART [Concomitant]
     Indication: PROSTATOMEGALY
     Dosage: UNK
  4. LYRICA [Suspect]
     Indication: FIBROMYALGIA
     Dosage: 150 MG, 2X/DAY
     Route: 048
     Dates: start: 20070101, end: 20120218
  5. MORPHINE [Concomitant]
     Indication: PAIN
     Dosage: UNK, AS NEEDED
  6. ALTACE [Concomitant]
     Dosage: UNK
  7. WARFARIN [Concomitant]
     Dosage: UNK

REACTIONS (2)
  - CEREBROVASCULAR ACCIDENT [None]
  - FEMUR FRACTURE [None]
